FAERS Safety Report 7074831-6 (Version None)
Quarter: 2010Q4

REPORT INFORMATION
  Report Type: 
  Country: None (occurrence: None)
  Receive Date: 20101029
  Receipt Date: 20101015
  Transmission Date: 20110411
  Serious: Yes (Disabling, Other)
  Sender: FDA-Public Use
  Company Number: US-ELI_LILLY_AND_COMPANY-US201010003951

PATIENT
  Sex: Female

DRUGS (5)
  1. CYMBALTA [Suspect]
     Indication: DEPRESSION
     Dosage: 90 MG, DAILY (1/D)
  2. WELLBUTRIN [Concomitant]
     Dosage: 150 MG, DAILY (1/D)
  3. WELLBUTRIN [Concomitant]
     Dosage: 300 MG, DAILY (1/D)
  4. EFFEXOR [Concomitant]
  5. LACTULOSE [Concomitant]

REACTIONS (4)
  - AUTOIMMUNE DISORDER [None]
  - BILIARY CIRRHOSIS PRIMARY [None]
  - CHRONIC HEPATIC FAILURE [None]
  - HEPATIC ENCEPHALOPATHY [None]
